FAERS Safety Report 7970095-7 (Version None)
Quarter: 2011Q4

REPORT INFORMATION
  Report Type: 
  Country: None (occurrence: None)
  Receive Date: 20111212
  Receipt Date: 20111208
  Transmission Date: 20120403
  Serious: Yes (Hospitalization)
  Sender: FDA-Public Use
  Company Number: JP-BAYER-2011-101834

PATIENT
  Age: 83 Year
  Sex: Male

DRUGS (5)
  1. NEXAVAR [Suspect]
     Indication: HEPATIC NEOPLASM MALIGNANT
     Dosage: 200 MG, QD
     Route: 048
     Dates: start: 20111005, end: 20111014
  2. ISOSORBIDE MONONITRATE [Concomitant]
     Indication: ANGINA PECTORIS
     Dosage: 20 MG, BID
     Route: 048
     Dates: start: 20050101
  3. LASIX [Concomitant]
     Indication: HEPATIC HYDROTHORAX
     Dosage: 20 MG, BID
     Route: 048
     Dates: start: 20110222
  4. ALDACTONE [Concomitant]
     Indication: HEPATIC HYDROTHORAX
     Dosage: 25 MG, QD
     Route: 048
     Dates: start: 20110222
  5. FAMOTIDINE [Concomitant]
     Indication: GASTROOESOPHAGEAL REFLUX DISEASE
     Dosage: 20 MG, BID
     Route: 048
     Dates: start: 20050101

REACTIONS (2)
  - DECREASED APPETITE [None]
  - HEPATIC ENCEPHALOPATHY [None]
